FAERS Safety Report 13464306 (Version 1)
Quarter: 2017Q2

REPORT INFORMATION
  Report Type: Spontaneous
  Country: US (occurrence: US)
  Receive Date: 20170420
  Receipt Date: 20170420
  Transmission Date: 20170830
  Serious: Yes (Other)
  Sender: FDA-Public Use
  Company Number: US-ROCHE-722767

PATIENT
  Age: 35 Year
  Sex: Female
  Weight: 59.4 kg

DRUGS (1)
  1. ACCUTANE [Suspect]
     Active Substance: ISOTRETINOIN
     Indication: ACNE CYSTIC
     Route: 048
     Dates: start: 19971216, end: 19980604

REACTIONS (7)
  - Dermatitis contact [Unknown]
  - Large intestinal ulcer [Unknown]
  - Gastrointestinal injury [Unknown]
  - Inflammatory bowel disease [Unknown]
  - Chapped lips [Unknown]
  - Depression [Unknown]
  - Eczema asteatotic [Unknown]

NARRATIVE: CASE EVENT DATE: 19980217
